FAERS Safety Report 6780833-7 (Version None)
Quarter: 2010Q2

REPORT INFORMATION
  Report Type: 
  Country: None (occurrence: None)
  Receive Date: 20100621
  Receipt Date: 20100603
  Transmission Date: 20101027
  Serious: Yes (Hospitalization, Other)
  Sender: FDA-Public Use
  Company Number: US-BAYER-201017040NA

PATIENT
  Age: 40 Year
  Sex: Female
  Weight: 68 kg

DRUGS (4)
  1. YAZ [Suspect]
     Indication: CONTRACEPTION
     Route: 048
     Dates: start: 20060101, end: 20080404
  2. ESTROTEP [Concomitant]
     Dosage: 2005
     Route: 065
  3. SARAFEM [Concomitant]
     Route: 065
  4. XANAX [Concomitant]
     Route: 065

REACTIONS (6)
  - FACIAL PALSY [None]
  - HEADACHE [None]
  - HEMIPARESIS [None]
  - MENTAL DISORDER [None]
  - MIGRAINE [None]
  - TRANSIENT ISCHAEMIC ATTACK [None]
